FAERS Safety Report 5525408-2 (Version None)
Quarter: 2007Q4

REPORT INFORMATION
  Report Type: 
  Country: None (occurrence: None)
  Receive Date: 20071126
  Receipt Date: 20071112
  Transmission Date: 20080405
  Serious: Yes (Death)
  Sender: FDA-Public Use
  Company Number: AT-PURDUE-DEU_2007_0003482

PATIENT
  Age: 21 Year
  Sex: Male
  Weight: 80 kg

DRUGS (3)
  1. MORPHINE [Suspect]
     Indication: DRUG ABUSE
  2. ROHYPNOL [Concomitant]
     Indication: DRUG ABUSE
  3. COCAINE [Concomitant]
     Indication: DRUG ABUSE

REACTIONS (4)
  - ACCIDENTAL OVERDOSE [None]
  - CARDIAC ARREST [None]
  - RESPIRATORY PARALYSIS [None]
  - SUBSTANCE ABUSE [None]
